FAERS Safety Report 7289121-6 (Version None)
Quarter: 2011Q1

REPORT INFORMATION
  Report Type: 
  Country: None (occurrence: None)
  Receive Date: 20110211
  Receipt Date: 20110203
  Transmission Date: 20110831
  Serious: Yes (Hospitalization, Other)
  Sender: FDA-Public Use
  Company Number: US-AMGEN-USASP2011006685

PATIENT
  Sex: Female

DRUGS (9)
  1. DILAUDID [Concomitant]
  2. AMITRIPTYLINE HCL [Concomitant]
  3. BUMEX [Concomitant]
  4. METOPROLOL [Concomitant]
  5. PROTONIX [Concomitant]
  6. COMPAZINE [Concomitant]
  7. ATIVAN [Concomitant]
  8. COUMADIN [Concomitant]
  9. SENSIPAR [Suspect]
     Indication: HYPERPARATHYROIDISM SECONDARY
     Dates: end: 20110101

REACTIONS (4)
  - TRANSPLANT FAILURE [None]
  - CALCIPHYLAXIS [None]
  - ENTERAL NUTRITION [None]
  - IMPAIRED HEALING [None]
